FAERS Safety Report 6345444-6 (Version None)
Quarter: 2009Q3

REPORT INFORMATION
  Report Type: 
  Country: None (occurrence: None)
  Receive Date: 20090909
  Receipt Date: 20090831
  Transmission Date: 20100115
  Serious: Yes (Other)
  Sender: FDA-Public Use
  Company Number: US-MYLANLABS-2009S1015393

PATIENT
  Age: 43 Year
  Sex: Female

DRUGS (9)
  1. DIVALPROEX SODIUM EXTENDED RELEASE [Suspect]
     Indication: CONVULSION
     Dosage: 500MG
     Route: 048
     Dates: start: 20090501, end: 20090726
  2. DIVALPROEX SODIUM EXTENDED RELEASE [Suspect]
     Route: 048
     Dates: start: 20090501, end: 20090726
  3. DIVALPROEX SODIUM EXTENDED RELEASE [Suspect]
     Route: 048
     Dates: start: 20090727, end: 20090801
  4. DIVALPROEX SODIUM EXTENDED RELEASE [Suspect]
     Route: 048
     Dates: start: 20090727, end: 20090801
  5. DIVALPROEX SODIUM EXTENDED RELEASE [Suspect]
     Route: 048
     Dates: start: 20090801
  6. DIVALPROEX SODIUM EXTENDED RELEASE [Suspect]
     Route: 048
     Dates: start: 20090801
  7. ROBAXIN [Concomitant]
     Route: 048
  8. COREG [Concomitant]
     Route: 048
  9. TOPAMAX [Concomitant]

REACTIONS (3)
  - ANTICONVULSANT DRUG LEVEL BELOW THERAPEUTIC [None]
  - CONVULSION [None]
  - DRUG INEFFECTIVE [None]
